FAERS Safety Report 12633284 (Version 2)
Quarter: 2016Q3

REPORT INFORMATION
  Report Type: Spontaneous
  Country: US (occurrence: US)
  Receive Date: 20160808
  Receipt Date: 20160808
  Transmission Date: 20161109
  Serious: No
  Sender: FDA-Public Use
  Company Number: US-BEH-2016060347

PATIENT
  Age: 78 Year
  Sex: Female
  Weight: 98 kg

DRUGS (17)
  1. VITAMIN B12 [Concomitant]
     Active Substance: CYANOCOBALAMIN
  2. ACETAMINOPHEN. [Concomitant]
     Active Substance: ACETAMINOPHEN
  3. LANTUS [Concomitant]
     Active Substance: INSULIN GLARGINE
  4. BIAXIN [Concomitant]
     Active Substance: CLARITHROMYCIN
  5. HYZAAR [Concomitant]
     Active Substance: HYDROCHLOROTHIAZIDE\LOSARTAN POTASSIUM
  6. DENAVIR [Concomitant]
     Active Substance: PENCICLOVIR
  7. XALATAN [Concomitant]
     Active Substance: LATANOPROST
  8. HIZENTRA [Suspect]
     Active Substance: HUMAN IMMUNOGLOBULIN G
     Indication: CONGENITAL HYPOGAMMAGLOBULINAEMIA
     Route: 058
  9. COZAAR [Concomitant]
     Active Substance: LOSARTAN POTASSIUM
  10. EPIPEN [Concomitant]
     Active Substance: EPINEPHRINE
  11. VENTOLIN [Concomitant]
     Active Substance: ALBUTEROL SULFATE
  12. HIZENTRA [Suspect]
     Active Substance: HUMAN IMMUNOGLOBULIN G
     Route: 058
     Dates: start: 20100824
  13. CORTISONE [Concomitant]
     Active Substance: CORTISONE\HYDROCORTISONE
  14. MACRODANTIN [Concomitant]
     Active Substance: NITROFURANTOIN
  15. ACULAR [Concomitant]
     Active Substance: KETOROLAC TROMETHAMINE
  16. CLEOCIN [Concomitant]
     Active Substance: CLINDAMYCIN PHOSPHATE
  17. NITROGLYCERIN. [Concomitant]
     Active Substance: NITROGLYCERIN

REACTIONS (3)
  - Fall [Unknown]
  - Injury [Unknown]
  - Fall [Unknown]

NARRATIVE: CASE EVENT DATE: 20151230
